FAERS Safety Report 15019378 (Version 1)
Quarter: 2018Q2

REPORT INFORMATION
  Report Type: Spontaneous
  Country: US (occurrence: US)
  Receive Date: 20180617
  Receipt Date: 20180617
  Transmission Date: 20180711
  Serious: Yes (Other)
  Sender: FDA-Public Use
  Company Number: PHHY2018US019358

PATIENT
  Age: 48 Year
  Sex: Male

DRUGS (1)
  1. ALPRAZOLAM. [Suspect]
     Active Substance: ALPRAZOLAM
     Indication: PRODUCT USED FOR UNKNOWN INDICATION
     Dosage: UNK
     Route: 065

REACTIONS (6)
  - Agitation [Recovering/Resolving]
  - Fall [Unknown]
  - Delirium [Recovering/Resolving]
  - Drug withdrawal syndrome [Unknown]
  - Drug abuse [Unknown]
  - Confusional state [Unknown]
